FAERS Safety Report 25345851 (Version 1)
Quarter: 2025Q2

REPORT INFORMATION
  Report Type: Spontaneous
  Country: US (occurrence: US)
  Receive Date: 20250522
  Receipt Date: 20250522
  Transmission Date: 20250717
  Serious: No
  Sender: BIONPHARMA INC.
  Company Number: US-Bion-014954

PATIENT

DRUGS (4)
  1. CLOBAZAM [Suspect]
     Active Substance: CLOBAZAM
     Indication: Focal dyscognitive seizures
  2. KEPPRA [Concomitant]
     Active Substance: LEVETIRACETAM
     Indication: Focal dyscognitive seizures
  3. MIDAZOLAM [Concomitant]
     Active Substance: MIDAZOLAM
     Indication: Focal dyscognitive seizures
  4. DIAZEPAM [Concomitant]
     Active Substance: DIAZEPAM
     Indication: Focal dyscognitive seizures

REACTIONS (1)
  - Somnolence [Unknown]
